FAERS Safety Report 8305783-6 (Version None)
Quarter: 2012Q2

REPORT INFORMATION
  Report Type: 
  Country: None (occurrence: None)
  Receive Date: 20120423
  Receipt Date: 20120419
  Transmission Date: 20120825
  Serious: No
  Sender: FDA-Public Use
  Company Number: US-PFIZER INC-2012097854

PATIENT
  Sex: Female
  Weight: 85.261 kg

DRUGS (6)
  1. PRILOSEC [Concomitant]
     Indication: ABDOMINAL DISCOMFORT
     Dosage: 20 MG, DAILY
  2. MAGNESIUM [Concomitant]
     Indication: MUSCLE SPASMS
     Dosage: 250 MG, DAILY
  3. FLEXERIL [Concomitant]
     Indication: MUSCLE SPASMS
     Dosage: 10 MG, DAILY
     Dates: start: 20111201
  4. IBUPROFEN (ADVIL) [Suspect]
     Indication: FIBROMYALGIA
     Dosage: 400 MG, DAILY
     Route: 048
     Dates: start: 20120101
  5. ATENOLOL [Concomitant]
     Indication: HYPERTENSION
     Dosage: 50 MG, DAILY
  6. IBUPROFEN (ADVIL) [Suspect]
     Indication: HEADACHE

REACTIONS (2)
  - HEPATIC STEATOSIS [None]
  - POOR QUALITY DRUG ADMINISTERED [None]
